FAERS Safety Report 5501462-9 (Version None)
Quarter: 2007Q4

REPORT INFORMATION
  Report Type: 
  Country: None (occurrence: None)
  Receive Date: 20071023
  Receipt Date: 20060808
  Transmission Date: 20080405
  Serious: Yes (Other)
  Sender: FDA-Public Use
  Company Number: 29577

PATIENT
  Age: 15 Year
  Sex: Female
  Weight: 80 kg

DRUGS (1)
  1. CYTARABINE [Suspect]
     Indication: ACUTE MYELOID LEUKAEMIA
     Dates: start: 20060722

REACTIONS (1)
  - NEUROLOGICAL SYMPTOM [None]
